FAERS Safety Report 6810330-1 (Version None)
Quarter: 2010Q2

REPORT INFORMATION
  Report Type: 
  Country: None (occurrence: None)
  Receive Date: 20100630
  Receipt Date: 20100618
  Transmission Date: 20101027
  Serious: Yes (Other)
  Sender: FDA-Public Use
  Company Number: PHHY2010DE34126

PATIENT
  Sex: Female

DRUGS (6)
  1. SANDIMMUNE [Suspect]
     Indication: LIVER TRANSPLANT
     Dosage: 50 MG, BID
     Route: 048
     Dates: start: 19990101
  2. SANDIMMUNE [Interacting]
     Dosage: 35 MG, BID
     Route: 048
     Dates: start: 19990101
  3. GLEEVEC [Interacting]
     Indication: GASTROINTESTINAL STROMAL TUMOUR
     Dosage: 200 MG, QD
     Route: 048
     Dates: start: 19990101
  4. GLEEVEC [Interacting]
     Indication: GASTROINTESTINAL PAIN
  5. LEVOTHYROXINE SODIUM [Concomitant]
     Route: 048
  6. HORMONES [Concomitant]
     Route: 048

REACTIONS (4)
  - DRUG INTERACTION [None]
  - FOOD INTERACTION [None]
  - GASTROINTESTINAL STROMAL TUMOUR [None]
  - IMMUNOSUPPRESSANT DRUG LEVEL DECREASED [None]
